FAERS Safety Report 5773409-1 (Version None)
Quarter: 2008Q2

REPORT INFORMATION
  Report Type: 
  Country: None (occurrence: None)
  Receive Date: 20080601
  Receipt Date: 20080109
  Transmission Date: 20081010
  Serious: No
  Sender: FDA-Public Use
  Company Number: US200705003096

PATIENT
  Age: 63 Year
  Sex: Female
  Weight: 99.3 kg

DRUGS (16)
  1. BYETTA [Suspect]
     Indication: INSULIN-REQUIRING TYPE 2 DIABETES MELLITUS
     Dosage: 5 UG, 2/D, SUBCUTANEOUS : 10 UG, 2/D, SUBCUTANEOUS : 10 UG, 2/D, SUBCUTANEOUS
     Route: 058
     Dates: start: 20070101, end: 20070101
  2. BYETTA [Suspect]
     Indication: INSULIN-REQUIRING TYPE 2 DIABETES MELLITUS
     Dosage: 5 UG, 2/D, SUBCUTANEOUS : 10 UG, 2/D, SUBCUTANEOUS : 10 UG, 2/D, SUBCUTANEOUS
     Route: 058
     Dates: start: 20070101
  3. BYETTA [Suspect]
  4. EXENATIDE PEN, DISPOSABLE DEVICE (EXENATIDE PEN) PEN,DISPOSABLE [Concomitant]
  5. GLYNASE [Concomitant]
  6. LEVOXYL [Concomitant]
  7. GLYBURIDE [Concomitant]
  8. METFORMIN HCL [Concomitant]
  9. ZETIA [Concomitant]
  10. LANTUS [Concomitant]
  11. CALTRATE (CALCIUM, VITAMIN D NOS) [Concomitant]
  12. ALTACE [Concomitant]
  13. MOBIC [Concomitant]
  14. ACTONEL [Concomitant]
  15. LIPITOR [Concomitant]
  16. MELATONIN (MELATONIN) [Concomitant]

REACTIONS (12)
  - BLOOD GLUCOSE DECREASED [None]
  - DECREASED APPETITE [None]
  - FLATULENCE [None]
  - FOOD CRAVING [None]
  - GASTROOESOPHAGEAL REFLUX DISEASE [None]
  - MEMORY IMPAIRMENT [None]
  - NAUSEA [None]
  - TREMOR [None]
  - VISION BLURRED [None]
  - VISUAL DISTURBANCE [None]
  - VOMITING [None]
  - WEIGHT DECREASED [None]
